FAERS Safety Report 7050894-9 (Version None)
Quarter: 2010Q4

REPORT INFORMATION
  Report Type: 
  Country: None (occurrence: None)
  Receive Date: 20101019
  Receipt Date: 20101011
  Transmission Date: 20110411
  Serious: No
  Sender: FDA-Public Use
  Company Number: 2010BI004872

PATIENT
  Age: 49 Year
  Sex: Male

DRUGS (2)
  1. TYSABRI [Suspect]
     Indication: MULTIPLE SCLEROSIS
     Route: 042
     Dates: start: 20091026, end: 20100830
  2. AMPYRA [Concomitant]
     Dates: start: 20100701

REACTIONS (9)
  - DRUG INEFFECTIVE [None]
  - EYE MOVEMENT DISORDER [None]
  - FATIGUE [None]
  - GAIT DISTURBANCE [None]
  - MUSCLE SPASMS [None]
  - PAIN [None]
  - PAIN IN EXTREMITY [None]
  - SCIATICA [None]
  - VISUAL IMPAIRMENT [None]
